FAERS Safety Report 7471252-9 (Version None)
Quarter: 2011Q2

REPORT INFORMATION
  Report Type: 
  Country: None (occurrence: None)
  Receive Date: 20110510
  Receipt Date: 20110504
  Transmission Date: 20111010
  Serious: Yes (Hospitalization)
  Sender: FDA-Public Use
  Company Number: IT-BAXTER-2011BH013090

PATIENT
  Age: 65 Year
  Sex: Female

DRUGS (6)
  1. EPIRUBICIN HYDROCHLORIDE [Suspect]
     Indication: BREAST CANCER
     Route: 042
     Dates: start: 20101118, end: 20110120
  2. NEULASTA [Concomitant]
     Indication: SUPPORTIVE CARE
     Route: 058
     Dates: start: 20101119, end: 20110121
  3. CYCLOPHOSPHAMIDE [Suspect]
     Indication: BREAST CANCER
     Route: 042
     Dates: start: 20101118, end: 20110120
  4. DEXAMETHASONE SODIUM POSPHATE [Concomitant]
     Indication: ANTIEMETIC SUPPORTIVE CARE
     Route: 042
     Dates: start: 20101118, end: 20110211
  5. FLUOROURACIL [Suspect]
     Indication: BREAST CANCER
     Route: 042
     Dates: start: 20101118, end: 20110120
  6. KYTRIL [Concomitant]
     Indication: ANTIEMETIC SUPPORTIVE CARE
     Route: 042
     Dates: start: 20101118, end: 20110211

REACTIONS (3)
  - FEBRILE NEUTROPENIA [None]
  - DYSPNOEA [None]
  - COUGH [None]
